FAERS Safety Report 13119416 (Version 2)
Quarter: 2017Q1

REPORT INFORMATION
  Report Type: Report from Study
  Country: US (occurrence: US)
  Receive Date: 20170116
  Receipt Date: 20170224
  Transmission Date: 20170428
  Serious: No
  Sender: FDA-Public Use
  Company Number: US-AMGEN-USASL2017003118

PATIENT
  Age: 81 Year
  Sex: Female

DRUGS (1)
  1. ENBREL [Suspect]
     Active Substance: ETANERCEPT
     Indication: RHEUMATOID ARTHRITIS
     Dosage: UNK
     Route: 065
     Dates: start: 2016

REACTIONS (16)
  - Night sweats [Unknown]
  - Swelling face [Unknown]
  - Attention deficit/hyperactivity disorder [Unknown]
  - Weight decreased [Unknown]
  - Eye swelling [Unknown]
  - Rash pruritic [Unknown]
  - Bronchitis [Recovered/Resolved]
  - Arthralgia [Unknown]
  - Injection site pain [Unknown]
  - Memory impairment [Unknown]
  - Injection site swelling [Unknown]
  - Injection site erythema [Unknown]
  - Eyelid oedema [Unknown]
  - Joint swelling [Unknown]
  - Rash [Unknown]
  - Butterfly rash [Unknown]

NARRATIVE: CASE EVENT DATE: 201612
